FAERS Safety Report 8313357-6 (Version None)
Quarter: 2012Q2

REPORT INFORMATION
  Report Type: 
  Country: None (occurrence: None)
  Receive Date: 20120426
  Receipt Date: 20120419
  Transmission Date: 20120825
  Serious: Yes (Death, Hospitalization, Other)
  Sender: FDA-Public Use
  Company Number: PHHO2010IT19287

PATIENT
  Sex: Male

DRUGS (9)
  1. BISOPROLOL FUMARATE [Concomitant]
  2. OMEPRAZOLE [Concomitant]
     Indication: GASTRITIS
  3. PERIDON [Concomitant]
     Indication: GASTRITIS
  4. LAMIVUDINE [Concomitant]
     Indication: HEPATITIS B
  5. ALBUMIN (HUMAN) [Concomitant]
  6. EVEROLIMUS [Suspect]
     Indication: HEPATIC NEOPLASM MALIGNANT
     Dosage: UNK
     Dates: start: 20101117, end: 20101210
  7. VIREAD [Concomitant]
  8. METOCLOPRAMIDE HYDROCHLORIDE [Concomitant]
  9. DE-URSIL [Concomitant]
     Indication: CHOLESTASIS

REACTIONS (4)
  - HEPATIC ENCEPHALOPATHY [None]
  - HEPATIC CIRRHOSIS [None]
  - NEOPLASM PROGRESSION [None]
  - NEOPLASM MALIGNANT [None]
